FAERS Safety Report 14919042 (Version 1)
Quarter: 2018Q2

REPORT INFORMATION
  Report Type: Spontaneous
  Country: RS (occurrence: RS)
  Receive Date: 20180521
  Receipt Date: 20180521
  Transmission Date: 20180711
  Serious: Yes (Other)
  Sender: FDA-Public Use
  Company Number: RS-PFIZER INC-2018202224

PATIENT
  Age: 40 Year
  Sex: Female

DRUGS (7)
  1. LACTULOSE. [Concomitant]
     Active Substance: LACTULOSE
     Indication: RENAL CELL CARCINOMA
     Dosage: UNK, AS NEEDED
  2. DEXAMETHASONE SODIUM PHOSPHATE. [Concomitant]
     Active Substance: DEXAMETHASONE SODIUM PHOSPHATE
     Dosage: 4 MG, AS NEEDED
  3. EUTHYROX [Concomitant]
     Active Substance: LEVOTHYROXINE SODIUM
     Dosage: 50 MICROGRAMS, 1X/DAY
  4. AXITINIB [Suspect]
     Active Substance: AXITINIB
     Indication: RENAL CELL CARCINOMA
     Dosage: 5 MG, 2X/DAY
     Dates: start: 20150330, end: 201605
  5. ALPRAZOLAM. [Concomitant]
     Active Substance: ALPRAZOLAM
     Dosage: 0.25 MG, UNK
  6. AXITINIB [Suspect]
     Active Substance: AXITINIB
     Dosage: 5 MG, 2X/DAY
     Dates: start: 201608, end: 20161010
  7. MORPHINE SULFATE. [Concomitant]
     Active Substance: MORPHINE SULFATE
     Dosage: 0.2% SYRUP 2ML/4MG  Q4H
     Dates: start: 201312

REACTIONS (7)
  - Anaemia [Unknown]
  - Hypercalcaemia [Unknown]
  - Stomatitis [Unknown]
  - Fatigue [Unknown]
  - Neoplasm progression [Unknown]
  - Cough [Unknown]
  - Neutropenia [Unknown]

NARRATIVE: CASE EVENT DATE: 201607
